FAERS Safety Report 6739490-8 (Version None)
Quarter: 2010Q2

REPORT INFORMATION
  Report Type: 
  Country: None (occurrence: None)
  Receive Date: 20100525
  Receipt Date: 20100513
  Transmission Date: 20101027
  Serious: Yes (Other)
  Sender: FDA-Public Use
  Company Number: BR-ELI_LILLY_AND_COMPANY-BR201005003508

PATIENT
  Sex: Female
  Weight: 82 kg

DRUGS (5)
  1. ZYPREXA [Suspect]
     Indication: PSYCHOTIC DISORDER
     Dosage: 20 MG, DAILY (1/D)
     Route: 065
  2. FLUOXETINA [Concomitant]
     Dosage: UNK, UNKNOWN
     Route: 065
  3. OMEPRAZOLE [Concomitant]
     Dosage: UNK, UNKNOWN
     Route: 065
  4. PLASIL [Concomitant]
     Dosage: UNK, UNKNOWN
     Route: 065
  5. SILEX [Concomitant]
     Dosage: UNK, UNKNOWN
     Route: 065

REACTIONS (3)
  - LUNG DISORDER [None]
  - PERITONEAL LESION [None]
  - UTERINE CANCER [None]
